FAERS Safety Report 25379091 (Version 1)
Quarter: 2025Q2

REPORT INFORMATION
  Report Type: Spontaneous
  Country: US (occurrence: None)
  Receive Date: 20250529
  Receipt Date: 20250529
  Transmission Date: 20250717
  Serious: Yes (Life-Threatening, Disabling, Other)
  Sender: FDA-CTU
  Company Number: None

PATIENT
  Age: 38 Year
  Sex: Female
  Weight: 62.1 kg

DRUGS (4)
  1. DULOXETINE [Suspect]
     Active Substance: DULOXETINE
     Indication: Major depression
     Route: 048
  2. BUPROPION [Concomitant]
     Active Substance: BUPROPION
  3. LAMICTAL [Concomitant]
     Active Substance: LAMOTRIGINE
  4. CLONZEPAN [Concomitant]

REACTIONS (10)
  - Withdrawal syndrome [None]
  - Visual impairment [None]
  - Liver injury [None]
  - Hyperhidrosis [None]
  - Sexual dysfunction [None]
  - Vertigo [None]
  - Dizziness [None]
  - Depression [None]
  - Anxiety [None]
  - Crying [None]

NARRATIVE: CASE EVENT DATE: 20240424
